FAERS Safety Report 9293507 (Version 7)
Quarter: 2013Q4

REPORT INFORMATION
  Report Type: Spontaneous
  Country: US (occurrence: US)
  Receive Date: 20130516
  Receipt Date: 20131105
  Transmission Date: 20140711
  Serious: Yes (Hospitalization)
  Sender: FDA-Public Use
  Company Number: US-GLAXOSMITHKLINE-A1023726A

PATIENT
  Age: 46 Year
  Sex: Female
  Weight: 52.3 kg

DRUGS (1)
  1. FLOLAN [Suspect]
     Indication: PULMONARY ARTERIAL HYPERTENSION
     Dosage: 54NGKM CONTINUOUS
     Route: 042
     Dates: start: 20020902

REACTIONS (11)
  - Device related infection [Recovering/Resolving]
  - Pulmonary haemorrhage [Unknown]
  - Catheter site swelling [Recovering/Resolving]
  - Neck pain [Recovering/Resolving]
  - Musculoskeletal pain [Recovering/Resolving]
  - Catheter site pain [Recovering/Resolving]
  - Catheter site discharge [Recovering/Resolving]
  - Pyrexia [Recovering/Resolving]
  - Catheter site pruritus [Recovering/Resolving]
  - Catheter site erythema [Recovering/Resolving]
  - Investigation [Unknown]
